FAERS Safety Report 15290248 (Version 3)
Quarter: 2020Q2

REPORT INFORMATION
  Report Type: Report from Study
  Country: CA (occurrence: CA)
  Receive Date: 20180817
  Receipt Date: 20200507
  Transmission Date: 20200713
  Serious: Yes (Other)
  Sender: FDA-Public Use
  Company Number: CA-GLAXOSMITHKLINE-CA2018GSK121816

PATIENT
  Sex: Male

DRUGS (3)
  1. MEPOLIZUMAB [Suspect]
     Active Substance: MEPOLIZUMAB
     Dosage: 100 MG, Z, MONTHLY
     Route: 042
  2. VENTOLIN [Suspect]
     Active Substance: ALBUTEROL SULFATE
     Indication: ASTHMA
     Dosage: UNK
     Dates: start: 2008
  3. MEPOLIZUMAB [Suspect]
     Active Substance: MEPOLIZUMAB
     Indication: ASTHMA
     Dosage: 100 MG, Z
     Route: 042
     Dates: start: 20180405

REACTIONS (31)
  - Fatigue [Unknown]
  - Sinus pain [Unknown]
  - Dyspnoea [Unknown]
  - Gait disturbance [Unknown]
  - Paranasal sinus discomfort [Unknown]
  - Paraesthesia [Unknown]
  - Pain in extremity [Unknown]
  - Erythema of eyelid [Unknown]
  - Hyperhidrosis [Unknown]
  - Burning sensation [Unknown]
  - Epistaxis [Unknown]
  - Costochondritis [Unknown]
  - Vision blurred [Unknown]
  - Hypertension [Unknown]
  - Irritability [Unknown]
  - Rhinitis [Unknown]
  - Breath odour [Unknown]
  - Malaise [Unknown]
  - Eyelid irritation [Unknown]
  - Middle insomnia [Unknown]
  - Tinnitus [Unknown]
  - Deafness unilateral [Unknown]
  - Visual impairment [Unknown]
  - Cluster headache [Unknown]
  - Dizziness [Unknown]
  - Hordeolum [Unknown]
  - Multiple chemical sensitivity [Unknown]
  - Palpitations [Unknown]
  - Angiopathy [Unknown]
  - Nasal crusting [Unknown]
  - Bedridden [Unknown]
